FAERS Safety Report 6759151-9 (Version None)
Quarter: 2010Q2

REPORT INFORMATION
  Report Type: 
  Country: None (occurrence: None)
  Receive Date: 20100607
  Receipt Date: 20100602
  Transmission Date: 20101027
  Serious: Yes (Death, Life-Threatening, Hospitalization, Other)
  Sender: FDA-Public Use
  Company Number: PHHY2010JP34526

PATIENT
  Age: 37 Year
  Sex: Male

DRUGS (27)
  1. CYCLOSPORINE [Suspect]
     Indication: PSORIASIS
     Dosage: 400 MG DAILY
     Route: 048
  2. CYCLOSPORINE [Suspect]
     Dosage: 200 MG DAILY
     Route: 048
  3. PREDNISOLONE [Concomitant]
     Indication: ENTERITIS
     Dosage: 60 MG
     Route: 048
  4. PREDNISOLONE [Concomitant]
     Indication: SMALL INTESTINE ULCER
     Dosage: 40 MG
     Route: 048
  5. PREDNISOLONE [Concomitant]
     Indication: INFLAMMATORY BOWEL DISEASE
     Dosage: 60 MG/DAY
     Route: 042
  6. PREDNISOLONE [Concomitant]
     Indication: PSORIASIS
  7. REMICADE [Concomitant]
     Route: 042
  8. GANCICLOVIR [Concomitant]
  9. METRONIDAZOLE [Concomitant]
  10. RIFAMPICIN [Concomitant]
     Route: 048
  11. TARGOCID [Concomitant]
  12. TAZOBACTAM [Concomitant]
  13. IMIPENEM [Concomitant]
  14. MICAFUNGIN SODIUM [Concomitant]
  15. FLUCONAZOLE [Concomitant]
  16. MEROPEN [Concomitant]
     Indication: ENTERITIS INFECTIOUS
     Dosage: 0.5 G
     Route: 042
  17. CLINDAMYCIN [Concomitant]
     Indication: ENTERITIS INFECTIOUS
     Dosage: 1200 MG
     Route: 042
  18. INFLIXIMAB [Concomitant]
     Indication: HAEMATOCHEZIA
     Dosage: 400 MG/ DAY
  19. POLYGAM S/D [Concomitant]
     Indication: CYTOMEGALOVIRUS INFECTION
  20. POLYGAM S/D [Concomitant]
     Indication: PSEUDOMEMBRANOUS COLITIS
  21. POLYGAM S/D [Concomitant]
     Indication: SEPSIS
  22. POLYGAM S/D [Concomitant]
     Indication: FUNGAEMIA
  23. VANCOMYCIN [Concomitant]
  24. TEICOPLANIN [Concomitant]
  25. PIPERACILLIN [Concomitant]
  26. CILASTATIN [Concomitant]
  27. METHYLPREDNISOLONE [Concomitant]
     Indication: OEDEMA
     Dosage: 125 MG/DAY

REACTIONS (45)
  - ABDOMINAL DISTENSION [None]
  - ABDOMINAL PAIN [None]
  - ABDOMINAL TENDERNESS [None]
  - ANAEMIA [None]
  - ANURIA [None]
  - ARTERIAL HAEMORRHAGE [None]
  - ASCITES [None]
  - BLOOD CREATININE INCREASED [None]
  - BLOOD PRODUCT TRANSFUSION [None]
  - BONE MARROW FAILURE [None]
  - BRAIN HERNIATION [None]
  - BRAIN OEDEMA [None]
  - CEREBRAL INFARCTION [None]
  - CHEST DISCOMFORT [None]
  - COLITIS ULCERATIVE [None]
  - CONJUNCTIVAL DISORDER [None]
  - CYTOMEGALOVIRUS INFECTION [None]
  - DEPRESSED LEVEL OF CONSCIOUSNESS [None]
  - DEVICE RELATED SEPSIS [None]
  - DIARRHOEA HAEMORRHAGIC [None]
  - DISSEMINATED INTRAVASCULAR COAGULATION [None]
  - DIVERTICULUM INTESTINAL [None]
  - ENTERITIS INFECTIOUS [None]
  - FUNGAEMIA [None]
  - GASTRIC MUCOSAL LESION [None]
  - GASTROINTESTINAL SOUNDS ABNORMAL [None]
  - HAEMATOCHEZIA [None]
  - INFLAMMATION [None]
  - INFLAMMATORY BOWEL DISEASE [None]
  - INTESTINAL PERFORATION [None]
  - MUSCLE DISORDER [None]
  - OEDEMA [None]
  - PANCYTOPENIA [None]
  - PSEUDOMEMBRANOUS COLITIS [None]
  - PSORIASIS [None]
  - RASH [None]
  - RENAL FAILURE CHRONIC [None]
  - RENAL IMPAIRMENT [None]
  - SKIN EXFOLIATION [None]
  - SMALL INTESTINAL HAEMORRHAGE [None]
  - SMALL INTESTINAL RESECTION [None]
  - SMALL INTESTINE ULCER [None]
  - SPEECH DISORDER [None]
  - SWELLING [None]
  - SYSTEMIC MYCOSIS [None]
